FAERS Safety Report 4676556-0 (Version None)
Quarter: 2005Q2

REPORT INFORMATION
  Report Type: 
  Country: None (occurrence: None)
  Receive Date: 20050526
  Receipt Date: 20050511
  Transmission Date: 20051028
  Serious: Yes (Life-Threatening, Hospitalization)
  Sender: FDA-Public Use
  Company Number: 2005S1003467

PATIENT
  Age: 55 Year
  Sex: Male
  Weight: 170 kg

DRUGS (12)
  1. ALLOPURINOL [Suspect]
     Indication: GOUT
     Dosage: 300 MG; QD; PO
     Route: 048
     Dates: start: 20050324
  2. ALLOPURINOL [Suspect]
     Indication: NEPHROLITHIASIS
     Dosage: 300 MG; QD; PO
     Route: 048
     Dates: start: 20050324
  3. ALLOPURINOL [Suspect]
     Indication: PROPHYLAXIS
     Dosage: 300 MG; QD; PO
     Route: 048
     Dates: start: 20050324
  4. RITUXAN [Suspect]
     Indication: CHRONIC LYMPHOCYTIC LEUKAEMIA
     Dosage: 800 MG; IV
     Route: 042
     Dates: start: 20050328, end: 20050328
  5. RITUXAN [Suspect]
     Indication: CHRONIC LYMPHOCYTIC LEUKAEMIA
     Dosage: 800 MG; IV
     Route: 042
     Dates: start: 20050401, end: 20050401
  6. FLUDARA [Suspect]
     Indication: CHRONIC LYMPHOCYTIC LEUKAEMIA
     Dosage: 50 MG; QD;
     Dates: start: 20050401, end: 20050401
  7. FLUDARA [Suspect]
     Indication: CHRONIC LYMPHOCYTIC LEUKAEMIA
     Dosage: 50 MG; QD;
     Dates: start: 20050328, end: 20050402
  8. DOLASETRON MESILATE [Concomitant]
  9. DEXAMETHASONE [Concomitant]
  10. SERTRALINE HCL [Concomitant]
  11. TIMOLOL MALEATE [Concomitant]
  12. LORATADINE [Concomitant]

REACTIONS (3)
  - BLOOD PRESSURE DECREASED [None]
  - DRUG HYPERSENSITIVITY [None]
  - NEUTROPHIL COUNT DECREASED [None]
